FAERS Safety Report 17772896 (Version 5)
Quarter: 2023Q1

REPORT INFORMATION
  Report Type: Spontaneous
  Country: US (occurrence: US)
  Receive Date: 20200512
  Receipt Date: 20230126
  Transmission Date: 20230418
  Serious: Yes (Other)
  Sender: FDA-Public Use
  Company Number: US-GILEAD-2020-0466289

PATIENT
  Sex: Male

DRUGS (3)
  1. VIREAD [Suspect]
     Active Substance: TENOFOVIR DISOPROXIL FUMARATE
     Indication: HIV infection
     Dosage: UNK
     Route: 048
     Dates: start: 200701, end: 201906
  2. TRUVADA [Suspect]
     Active Substance: EMTRICITABINE\TENOFOVIR DISOPROXIL FUMARATE
     Indication: HIV infection
     Dosage: UNK
     Route: 048
     Dates: start: 200701, end: 201905
  3. STRIBILD [Suspect]
     Active Substance: COBICISTAT\ELVITEGRAVIR\EMTRICITABINE\TENOFOVIR DISOPROXIL FUMARATE
     Indication: HIV infection
     Dosage: UNK
     Route: 048
     Dates: start: 201501, end: 201612

REACTIONS (11)
  - Renal injury [Unknown]
  - Chronic kidney disease [Not Recovered/Not Resolved]
  - Multiple fractures [Unknown]
  - Osteonecrosis [Unknown]
  - Multiple fractures [Not Recovered/Not Resolved]
  - Renal failure [Unknown]
  - Skeletal injury [Unknown]
  - Bone density decreased [Unknown]
  - Bone loss [Unknown]
  - Tooth loss [Unknown]
  - Protein total abnormal [Unknown]

NARRATIVE: CASE EVENT DATE: 20170101
